FAERS Safety Report 8899068 (Version 1)
Quarter: 2012Q4

REPORT INFORMATION
  Report Type: 
  Country: US (occurrence: US)
  Receive Date: 20121108
  Receipt Date: 20121108
  Transmission Date: 20130627
  Serious: No
  Sender: FDA-Public Use
  Company Number: US-AMGEN-USASP2012033556

PATIENT
  Sex: Male
  Weight: 76.64 kg

DRUGS (9)
  1. ENBREL [Suspect]
     Indication: PRODUCT USED FOR UNKNOWN INDICATION
     Dosage: 50 mg, 2 times/wk
     Route: 058
  2. ASPIRIN [Concomitant]
     Dosage: 81 mg, UNK
  3. VITAMIN B COMP                     /06817001/ [Concomitant]
     Dosage: UNK
  4. PROTEINS NOS [Concomitant]
     Dosage: UNK
  5. ALEVE [Concomitant]
     Dosage: 220 mg, UNK
  6. MULTIVITAMIN                       /00831701/ [Concomitant]
     Dosage: UNK
  7. TYLENOL /00020001/ [Concomitant]
     Dosage: 325 mg, UNK
  8. CO Q 10 [Concomitant]
     Dosage: 100 mg, UNK
  9. DHEA [Concomitant]
     Dosage: 10 mg, UNK

REACTIONS (1)
  - Injection site pain [Unknown]
